FAERS Safety Report 4650082-7 (Version None)
Quarter: 2005Q2

REPORT INFORMATION
  Report Type: 
  Country: None (occurrence: None)
  Receive Date: 20050428
  Receipt Date: 20050421
  Transmission Date: 20051028
  Serious: Yes (Hospitalization)
  Sender: FDA-Public Use
  Company Number: GBWYE606721APR05

PATIENT
  Age: 57 Year
  Sex: Male

DRUGS (1)
  1. EFFEXOR [Suspect]
     Indication: DEPRESSION
     Dosage: ONE TWICE DAILY ORAL
     Route: 048
     Dates: start: 20030101, end: 20050414

REACTIONS (2)
  - DIVERTICULITIS [None]
  - INGUINAL HERNIA [None]
